FAERS Safety Report 18377294 (Version 2)
Quarter: 2020Q4

REPORT INFORMATION
  Report Type: Report from Study
  Country: US (occurrence: US)
  Receive Date: 20201013
  Receipt Date: 20201016
  Transmission Date: 20210114
  Serious: Yes (Hospitalization)
  Sender: FDA-Public Use
  Company Number: US-BRISTOL-MYERS SQUIBB COMPANY-BMS-2020-070073

PATIENT
  Age: 82 Year
  Sex: Female
  Weight: 73.47 kg

DRUGS (2)
  1. AXITINIB [Suspect]
     Active Substance: AXITINIB
     Indication: RENAL CELL CARCINOMA
     Dosage: 3 MILLIGRAM, BID
     Route: 048
     Dates: start: 20200722, end: 20200824
  2. NIVOLUMAB [Suspect]
     Active Substance: NIVOLUMAB
     Indication: RENAL CELL CARCINOMA
     Dosage: 400 MILLIGRAM, Q4WK
     Route: 042
     Dates: start: 20200730, end: 20200825

REACTIONS (4)
  - Gait disturbance [Unknown]
  - Confusional state [Unknown]
  - Fracture [Unknown]
  - Fall [Unknown]

NARRATIVE: CASE EVENT DATE: 20200826
